FAERS Safety Report 6715128-0 (Version None)
Quarter: 2010Q2

REPORT INFORMATION
  Report Type: 
  Country: None (occurrence: None)
  Receive Date: 20100426
  Receipt Date: 20100204
  Transmission Date: 20101027
  Serious: Yes (Other)
  Sender: FDA-Public Use
  Company Number: 2010BI002088

PATIENT
  Age: 52 Year
  Sex: Male

DRUGS (6)
  1. TYSABRI [Suspect]
     Indication: MULTIPLE SCLEROSIS
     Dosage: 300 MG;QM;IV
     Route: 042
     Dates: start: 20091023, end: 20100115
  2. GABAPENTIN [Concomitant]
  3. BENAZEPRIL HYDROCHLORIDE [Concomitant]
  4. OMEGA FISH OIL [Concomitant]
  5. ASPIRIN [Concomitant]
  6. VITAMINS [Concomitant]

REACTIONS (4)
  - ANAPHYLACTIC REACTION [None]
  - PAIN IN EXTREMITY [None]
  - PHLEBITIS [None]
  - POOR VENOUS ACCESS [None]
